FAERS Safety Report 4687512-0 (Version None)
Quarter: 2005Q2

REPORT INFORMATION
  Report Type: 
  Country: None (occurrence: None)
  Receive Date: 20050608
  Receipt Date: 20050608
  Transmission Date: 20051028
  Serious: Yes (Hospitalization)
  Sender: FDA-Public Use
  Company Number: None

PATIENT
  Age: 17 Year
  Sex: Male

DRUGS (2)
  1. HALOPERIDOL [Suspect]
     Indication: SCHIZOPHRENIA
     Dosage: 5MG     BID     ORAL
     Route: 048
     Dates: start: 20050123, end: 20050302
  2. HALOPERIDOL DECANOATE [Suspect]
     Indication: SCHIZOPHRENIA
     Dosage: 100MG     EVERY 4TH DAY   INTRAMUSCU
     Route: 030
     Dates: start: 20040321, end: 20050225

REACTIONS (2)
  - NEUROLEPTIC MALIGNANT SYNDROME [None]
  - TRANSAMINASES INCREASED [None]
